FAERS Safety Report 17894047 (Version 2)
Quarter: 2020Q2

REPORT INFORMATION
  Report Type: Spontaneous
  Country: FR (occurrence: FR)
  Receive Date: 20200615
  Receipt Date: 20200622
  Transmission Date: 20200714
  Serious: Yes (Hospitalization)
  Sender: FDA-Public Use
  Company Number: FR-PFIZER INC-2020230790

PATIENT
  Sex: Female

DRUGS (2)
  1. BRAFTOVI [Suspect]
     Active Substance: ENCORAFENIB
     Indication: METASTATIC MALIGNANT MELANOMA
     Dosage: 450 MG, 1X/DAY
     Route: 048
     Dates: start: 202004
  2. MEKTOVI [Suspect]
     Active Substance: BINIMETINIB
     Indication: METASTATIC MALIGNANT MELANOMA
     Dosage: 45 MG, 2X/DAY
     Route: 048
     Dates: start: 202004

REACTIONS (7)
  - Decreased appetite [Unknown]
  - Weight decreased [Unknown]
  - Anaemia [Recovered/Resolved]
  - Urinary tract infection [Recovered/Resolved]
  - Fatigue [Unknown]
  - Asthenia [Unknown]
  - Diarrhoea haemorrhagic [Recovered/Resolved]

NARRATIVE: CASE EVENT DATE: 20200520
